FAERS Safety Report 6923872-5 (Version None)
Quarter: 2010Q3

REPORT INFORMATION
  Report Type: 
  Country: None (occurrence: None)
  Receive Date: 20100813
  Receipt Date: 20100208
  Transmission Date: 20110219
  Serious: No
  Sender: FDA-Public Use
  Company Number: US-BRISTOL-MYERS SQUIBB COMPANY-14969570

PATIENT
  Sex: Female

DRUGS (1)
  1. REYATAZ [Suspect]
     Dosage: FORM - TABLETS;50MG EVERY OTHER DAY.SPLIT INTO HALF (25MG) FOR EVERY DAY.

REACTIONS (1)
  - RASH [None]
